FAERS Safety Report 4683437-5 (Version None)
Quarter: 2005Q2

REPORT INFORMATION
  Report Type: 
  Country: None (occurrence: None)
  Receive Date: 20050607
  Receipt Date: 20050526
  Transmission Date: 20051028
  Serious: Yes (Hospitalization)
  Sender: FDA-Public Use
  Company Number: US-JNJFOC-20050507239

PATIENT
  Sex: Male

DRUGS (19)
  1. INFLIXIMAB [Suspect]
     Indication: RHEUMATOID ARTHRITIS
     Route: 042
  2. CELEBREX [Concomitant]
  3. CLONAZEPAM [Concomitant]
  4. COZAAR [Concomitant]
  5. CORTISONE [Concomitant]
  6. DARVOCET-N 100 [Concomitant]
  7. DARVOCET-N 100 [Concomitant]
  8. ASPIRIN [Concomitant]
  9. FLUOCINONIDE [Concomitant]
  10. FOLIC ACID [Concomitant]
  11. METHOTREXATE [Concomitant]
  12. NORVASC [Concomitant]
  13. PERCOCET [Concomitant]
  14. PERCOCET [Concomitant]
  15. PLAVIX [Concomitant]
  16. ACIPHEX [Concomitant]
  17. LIPITOR [Concomitant]
  18. PREDNISONE [Concomitant]
  19. CALCIUM GLUCONATE [Concomitant]

REACTIONS (6)
  - BENIGN PROSTATIC HYPERPLASIA [None]
  - BLADDER HYPERTROPHY [None]
  - EPIGLOTTITIS [None]
  - GASTRITIS [None]
  - HYDRONEPHROSIS [None]
  - PANCREATITIS ACUTE [None]
